FAERS Safety Report 25688974 (Version 1)
Quarter: 2025Q3

REPORT INFORMATION
  Report Type: Spontaneous
  Country: US (occurrence: US)
  Receive Date: 20250818
  Receipt Date: 20250818
  Transmission Date: 20251020
  Serious: Yes (Hospitalization)
  Sender: ALEXION PHARMACEUTICALS
  Company Number: US-AstraZeneca-CH-00928789A

PATIENT
  Sex: Female

DRUGS (2)
  1. TEZSPIRE [Suspect]
     Active Substance: TEZEPELUMAB-EKKO
     Route: 065
  2. TEZSPIRE [Suspect]
     Active Substance: TEZEPELUMAB-EKKO

REACTIONS (5)
  - Hypersensitivity [Unknown]
  - Headache [Unknown]
  - Fatigue [Unknown]
  - Rash [Unknown]
  - Hypertension [Unknown]
